FAERS Safety Report 9431560 (Version 1)
Quarter: 2013Q3

REPORT INFORMATION
  Report Type: Spontaneous
  Country: MX (occurrence: MX)
  Receive Date: 20130731
  Receipt Date: 20130731
  Transmission Date: 20140515
  Serious: Yes (Death, Other)
  Sender: FDA-Public Use
  Company Number: PHHY2013MX080110

PATIENT
  Sex: Male
  Weight: .64 kg

DRUGS (3)
  1. HYDRALAZINE [Suspect]
     Indication: PRE-ECLAMPSIA
     Dosage: UNK UKN, UNK
     Route: 064
  2. MAGNESIUM SULFATE [Suspect]
     Indication: PRE-ECLAMPSIA
     Dosage: UNK UKN, UNK
     Route: 064
  3. BETAMETHASONE [Suspect]
     Indication: PRE-ECLAMPSIA
     Dosage: UNK UKN, UNK
     Route: 064

REACTIONS (7)
  - Death [Fatal]
  - Sepsis [Unknown]
  - Neonatal respiratory distress syndrome [Unknown]
  - Hyponatraemia [Unknown]
  - Low birth weight baby [Unknown]
  - Apgar score low [Unknown]
  - Foetal exposure during pregnancy [Unknown]
